FAERS Safety Report 5270307-7 (Version None)
Quarter: 2007Q1

REPORT INFORMATION
  Report Type: 
  Country: None (occurrence: None)
  Receive Date: 20070314
  Receipt Date: 20070226
  Transmission Date: 20070707
  Serious: Yes (Other)
  Sender: FDA-Public Use
  Company Number: 2007JP000081

PATIENT
  Age: 65 Year
  Sex: Female
  Weight: 55.2 kg

DRUGS (7)
  1. TACROLIMUS CAPSULES(TACROLIMUS) CAPSULES [Suspect]
     Indication: RHEUMATOID ARTHRITIS
     Dosage: 1.5 MG, D, ORAL
     Route: 048
     Dates: start: 20060413, end: 20060605
  2. PREDNISOLONE [Concomitant]
  3. MOBIC [Concomitant]
  4. MOHRUS (KETOPROFEN) TAPE [Concomitant]
  5. ISODINE (POVIDONE-IODINE) MOUTH WASH [Concomitant]
  6. BISOPROLOL FUMARATE [Concomitant]
  7. PRAVASTATIN [Concomitant]

REACTIONS (3)
  - APHASIA [None]
  - INTRACRANIAL ANEURYSM [None]
  - SUBARACHNOID HAEMORRHAGE [None]
